FAERS Safety Report 9416280 (Version 1)
Quarter: 2013Q3

REPORT INFORMATION
  Report Type: Spontaneous
  Country: GB (occurrence: None)
  Receive Date: 20130719
  Receipt Date: 20130719
  Transmission Date: 20140515
  Serious: Yes (Other)
  Sender: FDA-Public Use
  Company Number: 1796618

PATIENT
  Age: 43 Year
  Sex: Female
  Weight: 62.4 kg

DRUGS (3)
  1. OXALIPLATIN [Suspect]
     Indication: NEOADJUVANT THERAPY
  2. CAPECITABINE [Suspect]
     Indication: NEOADJUVANT THERAPY
     Route: 048
     Dates: end: 20130524
  3. METOCLOPRAMIDE [Concomitant]

REACTIONS (6)
  - Blister [None]
  - Skin reaction [None]
  - Vomiting [None]
  - Rash [None]
  - Gastrointestinal toxicity [None]
  - Skin toxicity [None]
